FAERS Safety Report 10705459 (Version 2)
Quarter: 2015Q1

REPORT INFORMATION
  Report Type: Spontaneous
  Country: US (occurrence: US)
  Receive Date: 20150112
  Receipt Date: 20150112
  Transmission Date: 20150721
  Serious: No
  Sender: FDA-Public Use
  Company Number: US-GLAXOSMITHKLINE-A1071486A

PATIENT

DRUGS (1)
  1. PROMACTA [Suspect]
     Active Substance: ELTROMBOPAG OLAMINE
     Indication: IMMUNE THROMBOCYTOPENIC PURPURA
     Dosage: 25 MG TAB AT UNKNOWN DOSING; PATIENT ALSO NOTED 50 MG TAB.
     Route: 065
     Dates: start: 20140203

REACTIONS (2)
  - Pyrexia [Unknown]
  - Dysuria [Unknown]
